FAERS Safety Report 4293898-1 (Version None)
Quarter: 2004Q1

REPORT INFORMATION
  Report Type: 
  Country: None (occurrence: None)
  Receive Date: 20040211
  Receipt Date: 20040202
  Transmission Date: 20041129
  Serious: Yes (Disabling)
  Sender: FDA-Public Use
  Company Number: GB-SHR-04-020650

PATIENT
  Age: 38 Year
  Sex: Female
  Weight: 115 kg

DRUGS (1)
  1. MIRENA [Suspect]
     Indication: MENORRHAGIA
     Dosage: 20 UG/DAY, CONT, INTRA-UTERINE
     Route: 015
     Dates: start: 20030424, end: 20031210

REACTIONS (5)
  - ANXIETY [None]
  - MOOD ALTERED [None]
  - PALPITATIONS [None]
  - SLEEP DISORDER [None]
  - WEIGHT INCREASED [None]
